FAERS Safety Report 14239227 (Version 1)
Quarter: 2017Q4

REPORT INFORMATION
  Report Type: Spontaneous
  Country: US (occurrence: US)
  Receive Date: 20171127
  Receipt Date: 20171127
  Transmission Date: 20180321
  Serious: Yes (Life-Threatening, Other)
  Sender: FDA-Public Use
  Company Number: None

PATIENT
  Age: 57 Year
  Sex: Male
  Weight: 103.95 kg

DRUGS (2)
  1. LUMASON [Suspect]
     Active Substance: SULFUR HEXAFLUORIDE
     Indication: ARTERIOSCLEROSIS
     Dosage: ?          OTHER FREQUENCY:PER PROTOCOL;?
     Route: 040
     Dates: start: 20171127, end: 20171127
  2. LUMASON [Suspect]
     Active Substance: SULFUR HEXAFLUORIDE
     Indication: CARDIOMYOPATHY
     Dosage: ?          OTHER FREQUENCY:PER PROTOCOL;?
     Route: 040
     Dates: start: 20171127, end: 20171127

REACTIONS (4)
  - Nausea [None]
  - Incoherent [None]
  - Seizure [None]
  - Hyperhidrosis [None]

NARRATIVE: CASE EVENT DATE: 20171127
